FAERS Safety Report 16463992 (Version 3)
Quarter: 2019Q3

REPORT INFORMATION
  Report Type: Spontaneous
  Country: US (occurrence: US)
  Receive Date: 20190621
  Receipt Date: 20190922
  Transmission Date: 20191004
  Serious: Yes (Other)
  Sender: FDA-Public Use
  Company Number: US-ASTRAZENECA-2018SF65652

PATIENT
  Sex: Female

DRUGS (48)
  1. GENTAMICIN. [Concomitant]
     Active Substance: GENTAMICIN
  2. BACLOFEN. [Concomitant]
     Active Substance: BACLOFEN
  3. CEFUROXIME. [Concomitant]
     Active Substance: CEFUROXIME
  4. MELOXICAM. [Concomitant]
     Active Substance: MELOXICAM
  5. HYDROCODONE [Concomitant]
     Active Substance: HYDROCODONE
  6. SULFAMETHOXAZOLE [Concomitant]
     Active Substance: SULFAMETHOXAZOLE
  7. PROMETHAZINE [Concomitant]
     Active Substance: PROMETHAZINE HYDROCHLORIDE
  8. LORATADINE. [Concomitant]
     Active Substance: LORATADINE
  9. ADVAIR HFA [Concomitant]
     Active Substance: FLUTICASONE PROPIONATE\SALMETEROL XINAFOATE
  10. BENZONATATE. [Concomitant]
     Active Substance: BENZONATATE
     Route: 065
  11. NEXIUM [Suspect]
     Active Substance: ESOMEPRAZOLE MAGNESIUM
     Route: 048
  12. RISPERIDONE. [Concomitant]
     Active Substance: RISPERIDONE
  13. METHYLPREDNISOLONE. [Concomitant]
     Active Substance: METHYLPREDNISOLONE
  14. ONDANSETRON [Concomitant]
     Active Substance: ONDANSETRON
  15. PERMETHRIN. [Concomitant]
     Active Substance: PERMETHRIN
  16. HYDROCORTISONE. [Concomitant]
     Active Substance: HYDROCORTISONE
  17. BUPROPION HCL [Concomitant]
     Active Substance: BUPROPION HYDROCHLORIDE
  18. DILTIAZEM. [Concomitant]
     Active Substance: DILTIAZEM
  19. PREVACID [Suspect]
     Active Substance: LANSOPRAZOLE
     Route: 065
  20. XANAX [Concomitant]
     Active Substance: ALPRAZOLAM
  21. CRESTOR [Concomitant]
     Active Substance: ROSUVASTATIN CALCIUM
  22. LEVOFLOXACIN. [Concomitant]
     Active Substance: LEVOFLOXACIN
  23. ADDERALL XR [Concomitant]
     Active Substance: AMPHETAMINE ASPARTATE\AMPHETAMINE SULFATE\DEXTROAMPHETAMINE SACCHARATE\DEXTROAMPHETAMINE SULFATE
  24. DEXTROAMPHETAMINE. [Concomitant]
     Active Substance: DEXTROAMPHETAMINE
  25. OXYCODONE-ACETAMINOPHEN [Concomitant]
     Active Substance: ACETAMINOPHEN\OXYCODONE HYDROCHLORIDE
  26. PRILOSEC [Suspect]
     Active Substance: OMEPRAZOLE MAGNESIUM
     Indication: GASTROOESOPHAGEAL REFLUX DISEASE
     Route: 048
  27. VENTOLIN [Concomitant]
     Active Substance: ALBUTEROL SULFATE
  28. ENDOCET [Concomitant]
     Active Substance: ACETAMINOPHEN\OXYCODONE HYDROCHLORIDE
  29. OXYBUTYNIN. [Concomitant]
     Active Substance: OXYBUTYNIN CHLORIDE
  30. DETROL LA [Concomitant]
     Active Substance: TOLTERODINE TARTRATE
  31. PRILOSEC [Suspect]
     Active Substance: OMEPRAZOLE MAGNESIUM
     Indication: GASTROOESOPHAGEAL REFLUX DISEASE
     Dosage: GENERIC20.0MG UNKNOWN
     Route: 065
     Dates: start: 20101122
  32. PROTONIX [Suspect]
     Active Substance: PANTOPRAZOLE SODIUM
     Route: 065
  33. ACIPHEX [Suspect]
     Active Substance: RABEPRAZOLE SODIUM
     Route: 065
  34. GAVILYTE N [Concomitant]
  35. ALPRAZOLAM. [Concomitant]
     Active Substance: ALPRAZOLAM
     Indication: ANXIETY
  36. SEROQUEL XR [Concomitant]
     Active Substance: QUETIAPINE FUMARATE
  37. PREDNISONE. [Concomitant]
     Active Substance: PREDNISONE
  38. METHOCARBAMOL. [Concomitant]
     Active Substance: METHOCARBAMOL
  39. SINGULAIR [Concomitant]
     Active Substance: MONTELUKAST SODIUM
  40. DOXYCYCLINE HYCLATE. [Concomitant]
     Active Substance: DOXYCYCLINE HYCLATE
  41. PATADAY [Concomitant]
     Active Substance: OLOPATADINE HYDROCHLORIDE
  42. TRAZODONE [Concomitant]
     Active Substance: TRAZODONE HYDROCHLORIDE
  43. AZITHROMYCIN ANHYDROUS. [Concomitant]
     Active Substance: AZITHROMYCIN ANHYDROUS
     Indication: ANTIBIOTIC LEVEL
  44. TRAZODONE [Concomitant]
     Active Substance: TRAZODONE HYDROCHLORIDE
  45. CYMBALTA [Concomitant]
     Active Substance: DULOXETINE HYDROCHLORIDE
  46. TOVIAZ [Concomitant]
     Active Substance: FESOTERODINE FUMARATE
  47. MONTELUKAST [Concomitant]
     Active Substance: MONTELUKAST SODIUM
  48. VENLAFAXINE [Concomitant]
     Active Substance: VENLAFAXINE HYDROCHLORIDE

REACTIONS (4)
  - Renal injury [Unknown]
  - Rebound acid hypersecretion [Unknown]
  - Renal failure [Unknown]
  - Chronic kidney disease [Unknown]
